FAERS Safety Report 9664457 (Version 1)
Quarter: 2013Q4

REPORT INFORMATION
  Report Type: Spontaneous
  Country: US (occurrence: US)
  Receive Date: 20131101
  Receipt Date: 20131101
  Transmission Date: 20140711
  Serious: Yes (Hospitalization)
  Sender: FDA-Public Use
  Company Number: US-009507513-1310USA012620

PATIENT
  Age: 56 Year
  Sex: Female

DRUGS (1)
  1. PROVENTIL [Suspect]
     Indication: ASTHMA
     Dosage: 1 STANDARD DOSE OF 6.7
     Route: 055
     Dates: start: 1977

REACTIONS (8)
  - Pneumonia [Unknown]
  - Adverse event [Unknown]
  - Nasopharyngitis [Unknown]
  - Asthma [Unknown]
  - Malaise [Unknown]
  - Asthma [Unknown]
  - Drug dose omission [Unknown]
  - Product quality issue [Unknown]
